FAERS Safety Report 17599685 (Version 1)
Quarter: 2020Q1

REPORT INFORMATION
  Report Type: Report from Study
  Country: CO (occurrence: CO)
  Receive Date: 20200330
  Receipt Date: 20200330
  Transmission Date: 20200409
  Serious: Yes (Hospitalization, Other)
  Sender: FDA-Public Use
  Company Number: CO-ROCHE-2495387

PATIENT
  Sex: Female

DRUGS (3)
  1. VALIXA [Suspect]
     Active Substance: VALGANCICLOVIR
     Indication: PRODUCT USED FOR UNKNOWN INDICATION
     Route: 065
  2. CERTICAN [Concomitant]
     Active Substance: EVEROLIMUS
  3. CELLCEPT [Suspect]
     Active Substance: MYCOPHENOLATE MOFETIL\MYCOPHENOLATE MOFETIL HYDROCHLORIDE
     Indication: PRODUCT USED FOR UNKNOWN INDICATION
     Route: 065

REACTIONS (10)
  - Hepatomegaly [Unknown]
  - Vomiting [Unknown]
  - Cytomegalovirus infection [Unknown]
  - Dizziness [Unknown]
  - Diarrhoea [Unknown]
  - Malaise [Unknown]
  - Viral infection [Unknown]
  - Apparent death [Unknown]
  - Abdominal pain [Unknown]
  - Blood creatinine decreased [Unknown]
